FAERS Safety Report 4897974-1 (Version None)
Quarter: 2006Q1

REPORT INFORMATION
  Report Type: 
  Country: None (occurrence: None)
  Receive Date: 20060201
  Receipt Date: 20051205
  Transmission Date: 20060701
  Serious: Yes (Hospitalization, Other)
  Sender: FDA-Public Use
  Company Number: HQWYE831006DEC05

PATIENT
  Sex: Male

DRUGS (8)
  1. ENBREL [Suspect]
     Indication: RHEUMATOID ARTHRITIS
     Route: 058
     Dates: start: 20050915, end: 20051103
  2. PREDNISOLONE [Concomitant]
     Dates: end: 20051223
  3. PREDNISOLONE [Concomitant]
  4. ZANTAC [Concomitant]
     Dates: start: 20040601, end: 20051223
  5. FOLIAMIN [Concomitant]
     Dates: start: 20030725, end: 20051223
  6. PLETAL [Concomitant]
     Dates: start: 20050629, end: 20051223
  7. UNSPECIFIED MEDICATION [Concomitant]
     Dates: end: 20051223
  8. LEVODOPA [Concomitant]
     Dates: start: 20050107, end: 20051223

REACTIONS (2)
  - DEPRESSED LEVEL OF CONSCIOUSNESS [None]
  - OCULAR DYSMETRIA [None]
